FAERS Safety Report 8241483-9 (Version None)
Quarter: 2012Q1

REPORT INFORMATION
  Report Type: 
  Country: None (occurrence: None)
  Receive Date: 20120328
  Receipt Date: 20120320
  Transmission Date: 20120608
  Serious: Yes (Hospitalization, Other)
  Sender: FDA-Public Use
  Company Number: SK-AMGEN-SVKSP2011031475

PATIENT
  Age: 72 Year
  Sex: Female
  Weight: 55 kg

DRUGS (16)
  1. PROLIA [Suspect]
     Indication: OSTEOPOROSIS POSTMENOPAUSAL
     Dosage: 60 MG, Q6MO
     Dates: start: 20110615
  2. CREON [Concomitant]
     Dosage: 25000 IU, PRN
  3. FRONTIN [Concomitant]
     Dosage: 0.25 MG, QD
  4. STATIN                             /00848101/ [Concomitant]
     Dosage: UNK
  5. SIMVASTATIN [Concomitant]
     Dosage: 10 MG, QD
  6. OMEPRAZOLE [Concomitant]
     Dosage: 20 MG, BID
  7. TENSIOMIN [Concomitant]
     Dosage: 25 MG, PRN
     Route: 060
  8. ALVESCO [Concomitant]
     Dosage: UNK UNK, BID
  9. PAROXETINE HYDROCHLORIDE [Concomitant]
     Dosage: 10 MG, QD
  10. HYPNOGEN [Concomitant]
     Dosage: UNK UNK, PRN
  11. SPIRIVA [Concomitant]
     Dosage: UNK UNK, QD
  12. QUINOLONES [Concomitant]
  13. PAMBA                              /00934201/ [Concomitant]
     Dosage: UNK UNK, PRN
  14. CORTICOSTEROIDS [Concomitant]
     Dosage: UNK
     Route: 055
  15. ZODAC [Concomitant]
     Dosage: UNK UNK, PRN
  16. TORVAZIN [Concomitant]
     Dosage: 20 MG, QD

REACTIONS (9)
  - MYALGIA [None]
  - LIVER FUNCTION TEST ABNORMAL [None]
  - PYREXIA [None]
  - CHILLS [None]
  - FATIGUE [None]
  - POLLAKIURIA [None]
  - COUGH [None]
  - HAEMATURIA [None]
  - LUNG DISORDER [None]
